FAERS Safety Report 4994764-6 (Version None)
Quarter: 2006Q1

REPORT INFORMATION
  Report Type: 
  Country: None (occurrence: None)
  Receive Date: 20060313
  Receipt Date: 20050607
  Transmission Date: 20060701
  Serious: Yes (Other)
  Sender: FDA-Public Use
  Company Number: PHEH2005US06512

PATIENT
  Age: 14 Year
  Sex: Male

DRUGS (2)
  1. TRILEPTAL [Suspect]
     Indication: COMPLEX PARTIAL SEIZURES
     Dosage: 300 MG,BID,ORAL
     Route: 048
     Dates: start: 20040801
  2. ADDERALL (AMFETAMINE ASPARTATE, AMFETAMINE SULFATE, DEXAMFETAMINE SACC [Concomitant]

REACTIONS (1)
  - HYPERTENSION [None]
